FAERS Safety Report 15546691 (Version 1)
Quarter: 2018Q4

REPORT INFORMATION
  Report Type: Spontaneous
  Country: CA (occurrence: CA)
  Receive Date: 20181024
  Receipt Date: 20181024
  Transmission Date: 20190205
  Serious: Yes (Other)
  Sender: FDA-Public Use
  Company Number: CA-PFIZER INC-2018431879

PATIENT
  Age: 33 Year
  Sex: Female

DRUGS (4)
  1. COCAINE [Suspect]
     Active Substance: COCAINE
     Dosage: UNK
  2. HYDROMORPHONE HYDROCHLORIDE. [Suspect]
     Active Substance: HYDROMORPHONE HYDROCHLORIDE
     Dosage: UNK
     Route: 065
  3. HYDROMORPH CONTIN [Suspect]
     Active Substance: HYDROMORPHONE
     Dosage: UNK
     Route: 042
  4. CODEINE [Suspect]
     Active Substance: CODEINE
     Dosage: UNK

REACTIONS (4)
  - Drug dependence [Unknown]
  - Hepatitis C [Unknown]
  - Human immunodeficiency virus transmission [Unknown]
  - Substance abuse [Unknown]
